FAERS Safety Report 18674558 (Version 1)
Quarter: 2020Q4

REPORT INFORMATION
  Report Type: Spontaneous
  Country: US (occurrence: US)
  Receive Date: 20201229
  Receipt Date: 20201229
  Transmission Date: 20210114
  Serious: No
  Sender: FDA-Public Use
  Company Number: NVSC2020US338126

PATIENT
  Age: 12 Year

DRUGS (1)
  1. VIVELLE-DOT [Suspect]
     Active Substance: ESTRADIOL
     Indication: TURNER^S SYNDROME
     Route: 062

REACTIONS (2)
  - Skin irritation [Unknown]
  - Dermatitis contact [Unknown]
